FAERS Safety Report 8054219-1 (Version None)
Quarter: 2012Q1

REPORT INFORMATION
  Report Type: 
  Country: None (occurrence: None)
  Receive Date: 20120118
  Receipt Date: 20120111
  Transmission Date: 20120608
  Serious: Yes (Death, Other)
  Sender: FDA-Public Use
  Company Number: JP-ROCHE-1008470

PATIENT
  Sex: Female
  Weight: 50 kg

DRUGS (13)
  1. OXAROL [Concomitant]
     Route: 048
  2. DOPS [Concomitant]
     Route: 048
  3. ETIZOLAM [Concomitant]
     Route: 048
  4. SILECE [Concomitant]
     Route: 048
  5. FOSRENOL [Concomitant]
     Route: 048
  6. MIDODRINE HYDROCHLORIDE [Concomitant]
     Route: 048
  7. EVISTA [Concomitant]
     Route: 048
  8. AMEZINIUM METILSULFATE [Concomitant]
     Route: 048
  9. ALLOPURINOL [Concomitant]
     Route: 048
  10. MIRCERA [Suspect]
     Indication: NEPHROGENIC ANAEMIA
     Route: 042
     Dates: start: 20110806, end: 20110910
  11. FOSRENOL [Concomitant]
     Route: 048
  12. CALCIUM CARBONATE [Concomitant]
     Route: 048
  13. AMOBAN [Concomitant]
     Route: 048

REACTIONS (3)
  - THROMBOCYTOPENIA [None]
  - INFECTION [None]
  - BLADDER CANCER [None]
